FAERS Safety Report 4569657-9 (Version None)
Quarter: 2005Q1

REPORT INFORMATION
  Report Type: 
  Country: None (occurrence: None)
  Receive Date: 20050118
  Receipt Date: 20040719
  Transmission Date: 20050727
  Serious: Yes (Other)
  Sender: FDA-Public Use
  Company Number: HQWYE337822JUL04

PATIENT
  Age: 47 Year
  Sex: Female

DRUGS (3)
  1. PREMPRO [Suspect]
     Dates: start: 19970901, end: 20000501
  2. PREMARIN [Suspect]
     Dates: start: 19940101, end: 19971101
  3. PREMPHASE 14/14 [Suspect]
     Dates: start: 19970401, end: 19970901

REACTIONS (2)
  - BREAST CANCER [None]
  - MYOCARDIAL INFARCTION [None]
